FAERS Safety Report 4975043-X (Version None)
Quarter: 2006Q2

REPORT INFORMATION
  Report Type: 
  Country: None (occurrence: None)
  Receive Date: 20060414
  Receipt Date: 20060414
  Transmission Date: 20061013
  Serious: Yes (Life-Threatening, Hospitalization)
  Sender: FDA-Public Use
  Company Number: None

PATIENT
  Sex: Male

DRUGS (1)
  1. METHADONE HCL [Suspect]
     Indication: DRUG DETOXIFICATION
     Dosage: 120 MG   Q6H   PO
     Route: 048
     Dates: start: 20060311, end: 20060319

REACTIONS (1)
  - ARRHYTHMIA [None]
